FAERS Safety Report 13284815 (Version 1)
Quarter: 2017Q1

REPORT INFORMATION
  Report Type: Spontaneous
  Country: US (occurrence: US)
  Receive Date: 20170301
  Receipt Date: 20170301
  Transmission Date: 20170428
  Serious: Yes (Hospitalization)
  Sender: FDA-Public Use
  Company Number: US-IMPAX LABORATORIES, INC-2017-IPXL-00462

PATIENT
  Age: 29 Year
  Sex: Male

DRUGS (6)
  1. DIVALPROEX SODIUM ER [Interacting]
     Active Substance: DIVALPROEX SODIUM
     Dosage: 500 MG, EVERY 8HR
     Route: 042
  2. ERTAPENEM [Interacting]
     Active Substance: ERTAPENEM
     Indication: MULTIPLE-DRUG RESISTANCE
     Dosage: 1 G, EVERY 24 HOUR
     Route: 042
  3. LEVETIRACETAM. [Concomitant]
     Active Substance: LEVETIRACETAM
     Dosage: 1000 MG, 2 /DAY
     Route: 042
  4. LEVETIRACETAM. [Concomitant]
     Active Substance: LEVETIRACETAM
     Indication: GENERALISED TONIC-CLONIC SEIZURE
     Dosage: 1500 MG, 2 /DAY
     Route: 065
  5. DIVALPROEX SODIUM ER [Suspect]
     Active Substance: DIVALPROEX SODIUM
     Indication: GENERALISED TONIC-CLONIC SEIZURE
     Dosage: 500 MG, 2 /DAY
     Route: 065
  6. LORAZEPAM. [Concomitant]
     Active Substance: LORAZEPAM
     Indication: PRODUCT USED FOR UNKNOWN INDICATION
     Dosage: UNK, PRN
     Route: 065

REACTIONS (7)
  - Encephalitis [Unknown]
  - Drug interaction [Unknown]
  - Status epilepticus [Unknown]
  - Sepsis [Unknown]
  - Pneumonia klebsiella [Unknown]
  - CSF lymphocyte count increased [Unknown]
  - Drug level below therapeutic [Unknown]
